FAERS Safety Report 23964935 (Version 2)
Quarter: 2024Q3

REPORT INFORMATION
  Report Type: Report from Study
  Country: DE (occurrence: DE)
  Receive Date: 20240612
  Receipt Date: 20240701
  Transmission Date: 20241016
  Serious: Yes (Other)
  Sender: JOHNSON AND JOHNSON
  Company Number: DE-JNJFOC-20240611493

PATIENT
  Age: 47 Year
  Sex: Male

DRUGS (3)
  1. SPRAVATO [Suspect]
     Active Substance: ESKETAMINE
     Indication: Depression
     Dosage: 28 MG (1 DEVICE)
     Dates: start: 20240131, end: 20240131
  2. SPRAVATO [Suspect]
     Active Substance: ESKETAMINE
     Dosage: 56 MG (2 DEVICES)
     Dates: start: 20240202, end: 20240202
  3. SPRAVATO [Suspect]
     Active Substance: ESKETAMINE
     Dosage: 84 MG (2 DEVICES), 09-FEB-2024, 13-FEB-2024, 16-FEB-2024, 20-FEB-2024, 23-FEB-2024, 29-FEB-2024, 07-
     Dates: start: 20240206, end: 20240521

REACTIONS (1)
  - Poisoning [Recovered/Resolved]

NARRATIVE: CASE EVENT DATE: 20240601
